FAERS Safety Report 12904842 (Version 8)
Quarter: 2017Q1

REPORT INFORMATION
  Report Type: Spontaneous
  Country: US (occurrence: US)
  Receive Date: 20161102
  Receipt Date: 20170130
  Transmission Date: 20170428
  Serious: Yes (Other)
  Sender: FDA-Public Use
  Company Number: US-ACTELION-A-NJ2016-144708

PATIENT
  Age: 77 Year
  Sex: Female

DRUGS (9)
  1. UPTRAVI [Suspect]
     Active Substance: SELEXIPAG
     Indication: PRODUCT USED FOR UNKNOWN INDICATION
     Dosage: 1400 MCG, BID
     Route: 048
  2. UPTRAVI [Suspect]
     Active Substance: SELEXIPAG
     Dosage: 1000 MCG, BID
     Route: 048
  3. AMBRISENTAN [Suspect]
     Active Substance: AMBRISENTAN
     Indication: PRODUCT USED FOR UNKNOWN INDICATION
     Dosage: 10 MG, QD
     Route: 048
     Dates: start: 20160114
  4. REVATIO [Concomitant]
     Active Substance: SILDENAFIL CITRATE
  5. UPTRAVI [Suspect]
     Active Substance: SELEXIPAG
     Dosage: 1200 MCG, BID
     Route: 048
  6. UPTRAVI [Suspect]
     Active Substance: SELEXIPAG
     Dosage: 800 MCG, BID
     Route: 048
  7. UPTRAVI [Suspect]
     Active Substance: SELEXIPAG
     Dosage: 1200 MCG, BID
     Route: 048
  8. SILDENAFIL. [Concomitant]
     Active Substance: SILDENAFIL
  9. LASIX [Suspect]
     Active Substance: FUROSEMIDE
     Indication: PRODUCT USED FOR UNKNOWN INDICATION
     Route: 065

REACTIONS (19)
  - Pain in extremity [Unknown]
  - Myalgia [Unknown]
  - Pain [Recovered/Resolved]
  - Back pain [Recovering/Resolving]
  - Hypotension [Unknown]
  - Nausea [Unknown]
  - Malaise [Unknown]
  - Pulmonary arterial hypertension [Not Recovered/Not Resolved]
  - Nerve compression [Unknown]
  - Fatigue [Recovered/Resolved]
  - Arthralgia [Unknown]
  - Sciatica [Unknown]
  - Heart rate increased [Unknown]
  - Deafness [Unknown]
  - Abdominal discomfort [Unknown]
  - Headache [Recovered/Resolved]
  - Somnolence [Unknown]
  - Poor quality sleep [Unknown]
  - Oxygen saturation abnormal [Not Recovered/Not Resolved]
